FAERS Safety Report 7922707-1 (Version None)
Quarter: 2011Q4

REPORT INFORMATION
  Report Type: 
  Country: None (occurrence: None)
  Receive Date: 20111117
  Receipt Date: 20110524
  Transmission Date: 20120403
  Serious: No
  Sender: FDA-Public Use
  Company Number: US-ALLERGAN-1107091US

PATIENT
  Age: 85 Year
  Sex: Female

DRUGS (1)
  1. COMBIGAN [Suspect]
     Indication: GLAUCOMA
     Dosage: 2 GTT, BID
     Dates: start: 20101001, end: 20101201

REACTIONS (4)
  - HYPERSENSITIVITY [None]
  - OCULAR HYPERAEMIA [None]
  - EYE PRURITUS [None]
  - LACRIMATION INCREASED [None]
